FAERS Safety Report 6583833-5 (Version None)
Quarter: 2010Q1

REPORT INFORMATION
  Report Type: 
  Country: None (occurrence: None)
  Receive Date: 20100216
  Receipt Date: 20091116
  Transmission Date: 20100710
  Serious: Yes (Hospitalization)
  Sender: FDA-Public Use
  Company Number: US-ABBOTT-09P-163-0608929-00

PATIENT
  Sex: Male
  Weight: 96.702 kg

DRUGS (8)
  1. SIMCOR [Suspect]
     Indication: BLOOD TRIGLYCERIDES INCREASED
     Dosage: 1000/20 MILLIGRAMS
     Route: 048
     Dates: start: 20080101
  2. SIMCOR [Suspect]
     Indication: ARTERIOSCLEROSIS
  3. BENICAR [Concomitant]
     Indication: HYPERTENSION
     Route: 048
     Dates: end: 20091110
  4. JANUMET [Concomitant]
     Indication: DIABETES MELLITUS
     Route: 048
  5. ASPIRIN [Concomitant]
     Indication: DRUG USE FOR UNKNOWN INDICATION
     Route: 048
  6. ACTOS [Concomitant]
     Indication: DIABETES MELLITUS
     Route: 048
  7. GLIMEPIRIDE [Concomitant]
     Indication: DIABETES MELLITUS
  8. TRILIPIX [Concomitant]
     Indication: DRUG USE FOR UNKNOWN INDICATION

REACTIONS (4)
  - BLOOD GLUCOSE FLUCTUATION [None]
  - FLUSHING [None]
  - PANCREATITIS [None]
  - WEIGHT DECREASED [None]
